FAERS Safety Report 10192921 (Version 1)
Quarter: 2014Q2

REPORT INFORMATION
  Report Type: Spontaneous
  Country: CN (occurrence: CN)
  Receive Date: 20140523
  Receipt Date: 20140523
  Transmission Date: 20141212
  Serious: Yes (Hospitalization, Other)
  Sender: FDA-Public Use
  Company Number: CN-ASTRAZENECA-2014SE35154

PATIENT
  Age: 45 Year
  Sex: Male

DRUGS (3)
  1. CRESTOR [Suspect]
     Indication: LIPIDS ABNORMAL
     Route: 048
     Dates: start: 201405, end: 201405
  2. CRESTOR [Suspect]
     Indication: THROMBOSIS PROPHYLAXIS
     Route: 048
     Dates: start: 201405, end: 201405
  3. BAYASPIRIN [Concomitant]

REACTIONS (6)
  - Muscle enzyme increased [Recovering/Resolving]
  - Depressed level of consciousness [Unknown]
  - Vomiting [Unknown]
  - Dizziness [Unknown]
  - Nausea [Unknown]
  - Rash maculo-papular [Unknown]
